FAERS Safety Report 24709309 (Version 2)
Quarter: 2024Q4

REPORT INFORMATION
  Report Type: Spontaneous
  Country: US (occurrence: US)
  Receive Date: 20241208
  Receipt Date: 20241223
  Transmission Date: 20250115
  Serious: Yes (Other)
  Sender: BAUSCH AND LOMB
  Company Number: US-BAUSCHBL-2024BNL034782

PATIENT
  Sex: Female

DRUGS (3)
  1. GLYCERIN\PROPYLENE GLYCOL [Suspect]
     Active Substance: GLYCERIN\PROPYLENE GLYCOL
     Indication: Product used for unknown indication
     Route: 047
  2. UNSPECIFIED INGREDIENT [Suspect]
     Active Substance: UNSPECIFIED INGREDIENT
     Indication: Dry skin
     Route: 061
  3. UNSPECIFIED INGREDIENT [Suspect]
     Active Substance: UNSPECIFIED INGREDIENT
     Route: 061

REACTIONS (3)
  - Breast cancer [Unknown]
  - Eye disorder [Unknown]
  - Product complaint [Unknown]

NARRATIVE: CASE EVENT DATE: 20241001
